FAERS Safety Report 19152345 (Version 1)
Quarter: 2021Q2

REPORT INFORMATION
  Report Type: Spontaneous
  Country: US (occurrence: US)
  Receive Date: 20210419
  Receipt Date: 20210419
  Transmission Date: 20210717
  Serious: No
  Sender: FDA-Public Use
  Company Number: US-TAKEDA-2021TUS023760

PATIENT
  Sex: Male
  Weight: 80 kg

DRUGS (1)
  1. MOTEGRITY [Suspect]
     Active Substance: PRUCALOPRIDE SUCCINATE
     Indication: INFLAMMATORY BOWEL DISEASE
     Dosage: 2 MILLIGRAM, QD
     Route: 048

REACTIONS (2)
  - Fatigue [Unknown]
  - Off label use [Unknown]
